FAERS Safety Report 6031777-X (Version None)
Quarter: 2009Q1

REPORT INFORMATION
  Report Type: 
  Country: None (occurrence: None)
  Receive Date: 20090108
  Receipt Date: 20090105
  Transmission Date: 20090719
  Serious: Yes (Life-Threatening, Other)
  Sender: FDA-Public Use
  Company Number: US-MERCK-0810USA04958

PATIENT
  Age: 59 Year
  Sex: Female
  Weight: 59 kg

DRUGS (31)
  1. PRIMAXIN [Suspect]
     Indication: ACINETOBACTER INFECTION
     Route: 042
     Dates: start: 20081019, end: 20081023
  2. AMPICILLIN [Concomitant]
     Route: 042
     Dates: start: 20081018, end: 20081023
  3. TUMS [Concomitant]
     Route: 048
     Dates: start: 20081017, end: 20081105
  4. ROCEPHIN [Concomitant]
     Route: 042
     Dates: start: 20081015, end: 20081028
  5. FRAGMIN [Concomitant]
     Route: 058
     Dates: start: 20081017, end: 20081023
  6. FRAGMIN [Concomitant]
     Route: 065
     Dates: start: 20081101, end: 20081105
  7. DIGOXIN [Concomitant]
     Route: 048
     Dates: start: 20081015, end: 20081105
  8. COLACE [Concomitant]
     Route: 048
     Dates: start: 20081017, end: 20081105
  9. DURAGESIC-100 [Concomitant]
     Route: 061
     Dates: start: 20081015
  10. ALLEGRA [Concomitant]
     Route: 048
     Dates: start: 20081015, end: 20081105
  11. FOLIC ACID [Concomitant]
     Route: 048
     Dates: start: 20081015, end: 20081105
  12. HEPARIN [Concomitant]
     Route: 042
     Dates: start: 20081015, end: 20081105
  13. LOPRESSOR [Concomitant]
     Route: 048
     Dates: start: 20081015, end: 20081105
  14. PRILOSEC [Concomitant]
     Route: 048
     Dates: start: 20081015, end: 20081105
  15. SUDAFED 12 HOUR [Concomitant]
     Route: 048
     Dates: start: 20081015, end: 20081105
  16. SENOKOT (SENNOSIDES) [Concomitant]
     Route: 065
     Dates: start: 20081017, end: 20081105
  17. ZOLOFT [Concomitant]
     Route: 048
     Dates: start: 20081015, end: 20081023
  18. ASCORBIC ACID [Concomitant]
     Route: 048
     Dates: start: 20081017, end: 20081105
  19. VITAMINS (UNSPECIFIED) [Concomitant]
     Route: 048
     Dates: start: 20081015, end: 20081105
  20. ZINC SULFATE [Concomitant]
     Route: 048
     Dates: start: 20081017, end: 20081105
  21. TYLENOL (CAPLET) [Concomitant]
     Indication: PAIN
     Route: 065
     Dates: start: 20081015
  22. TYLENOL (CAPLET) [Concomitant]
     Indication: BODY TEMPERATURE INCREASED
     Route: 065
     Dates: start: 20081015
  23. DULCOLAX [Concomitant]
     Indication: CONSTIPATION
     Route: 048
     Dates: start: 20081015
  24. STADOL [Concomitant]
     Indication: PAIN
     Route: 042
     Dates: start: 20081015
  25. ATARAX [Concomitant]
     Indication: PRURITUS
     Route: 048
     Dates: start: 20081015
  26. MAGNESIA [MILK OF] [Concomitant]
     Indication: CONSTIPATION
     Route: 048
     Dates: start: 20081015
  27. ZOFRAN [Concomitant]
     Route: 042
     Dates: start: 20081015
  28. PERCOCET [Concomitant]
     Indication: PAIN
     Route: 048
     Dates: start: 20081015
  29. AMBIEN [Concomitant]
     Indication: INSOMNIA
     Route: 048
     Dates: start: 20081015
  30. MACROBID [Concomitant]
     Route: 065
  31. SODIUM CHLORIDE [Concomitant]
     Route: 042
     Dates: start: 20081015, end: 20081105

REACTIONS (6)
  - CEREBRAL INFARCTION [None]
  - CONVULSION [None]
  - ENCEPHALOPATHY [None]
  - HEADACHE [None]
  - PAIN [None]
  - SICKLE CELL ANAEMIA [None]
